FAERS Safety Report 8165481-9 (Version None)
Quarter: 2012Q1

REPORT INFORMATION
  Report Type: 
  Country: None (occurrence: None)
  Receive Date: 20120227
  Receipt Date: 20111102
  Transmission Date: 20120608
  Serious: No
  Sender: FDA-Public Use
  Company Number: US-MYLANLABS-2011S1022587

PATIENT
  Age: 76 Year
  Sex: Female

DRUGS (5)
  1. METOPROLOL TARTRATE [Suspect]
     Route: 048
     Dates: start: 20070101
  2. COUMADIN [Concomitant]
     Dosage: (TUE, THUR, SAT)
     Route: 048
  3. PANTOPRAZOLE SODIUM [Suspect]
     Indication: GASTRIC ULCER
     Route: 048
  4. METOPROLOL TARTRATE [Suspect]
     Indication: ATRIAL FIBRILLATION
     Route: 048
     Dates: start: 20070101
  5. COUMADIN [Concomitant]
     Indication: ATRIAL FIBRILLATION
     Dosage: (M, W, F, SUN)
     Route: 048

REACTIONS (1)
  - FUNGAL INFECTION [None]
